FAERS Safety Report 7971944-9 (Version None)
Quarter: 2011Q4

REPORT INFORMATION
  Report Type: 
  Country: None (occurrence: None)
  Receive Date: 20111212
  Receipt Date: 20111202
  Transmission Date: 20120403
  Serious: Yes (Hospitalization)
  Sender: FDA-Public Use
  Company Number: FR-BRISTOL-MYERS SQUIBB COMPANY-16271991

PATIENT
  Age: 43 Year
  Sex: Male

DRUGS (4)
  1. ABILIFY [Suspect]
     Indication: BIPOLAR DISORDER
     Route: 048
     Dates: start: 20111022, end: 20111026
  2. LITHIUM CARBONATE [Concomitant]
     Indication: BIPOLAR DISORDER
  3. ESCITALOPRAM OXALATE [Concomitant]
     Indication: BIPOLAR DISORDER
  4. CLONAZEPAM [Concomitant]
     Indication: BIPOLAR DISORDER

REACTIONS (1)
  - CEREBRAL THROMBOSIS [None]
